FAERS Safety Report 4471433-2 (Version None)
Quarter: 2004Q4

REPORT INFORMATION
  Report Type: 
  Country: None (occurrence: None)
  Receive Date: 20041012
  Receipt Date: 20040729
  Transmission Date: 20050328
  Serious: Yes (Other)
  Sender: FDA-Public Use
  Company Number: 200417565GDDC

PATIENT
  Age: 61 Year
  Sex: Female

DRUGS (3)
  1. ARAVA [Suspect]
     Indication: RHEUMATOID ARTHRITIS
     Route: 048
     Dates: start: 20011101
  2. SALBUTAMOL [Concomitant]
     Dosage: DOSE: UNK
     Route: 055
  3. B12 [Concomitant]
     Dosage: DOSE: UNK
     Route: 058

REACTIONS (1)
  - LEFT VENTRICULAR FAILURE [None]
